FAERS Safety Report 5224360-7 (Version None)
Quarter: 2007Q1

REPORT INFORMATION
  Report Type: 
  Country: None (occurrence: None)
  Receive Date: 20070130
  Receipt Date: 20070124
  Transmission Date: 20070707
  Serious: Yes (Hospitalization, Other)
  Sender: FDA-Public Use
  Company Number: US-BOEHRINGER INGELHEIM PHARMACEUTICALS, INC.-2007-BP-01438PF

PATIENT
  Sex: Female
  Weight: 70.31 kg

DRUGS (11)
  1. SPIRIVA [Suspect]
     Indication: CHRONIC OBSTRUCTIVE PULMONARY DISEASE
  2. ZITHROMAX [Suspect]
     Indication: LUNG DISORDER
     Route: 042
     Dates: start: 20070101
  3. BENADRYL [Suspect]
     Indication: RASH
     Dates: start: 20070101
  4. BENADRYL [Suspect]
     Indication: PRURITUS
  5. CHANTIX [Suspect]
     Indication: SMOKING CESSATION THERAPY
     Dates: start: 20070103
  6. DOXYCYCLINE [Suspect]
     Dates: start: 20070101
  7. LEVAQUIN [Suspect]
  8. ADVAIR DISKUS 100/50 [Concomitant]
  9. XOPENEX [Concomitant]
  10. PREDNISONE [Concomitant]
  11. ROCEPHIN [Concomitant]
     Route: 042

REACTIONS (3)
  - PNEUMONIA [None]
  - PRURITUS [None]
  - RASH [None]
